FAERS Safety Report 14134225 (Version 1)
Quarter: 2017Q4

REPORT INFORMATION
  Report Type: Spontaneous
  Country: US (occurrence: US)
  Receive Date: 20171026
  Receipt Date: 20171026
  Transmission Date: 20180321
  Serious: Yes (Hospitalization)
  Sender: FDA-Public Use
  Company Number: US-TESARO, INC-US-2017TSO02126

PATIENT

DRUGS (2)
  1. ZEJULA [Suspect]
     Active Substance: NIRAPARIB
     Indication: OVARIAN CANCER RECURRENT
     Dosage: 300 MG, QD
     Route: 048
     Dates: start: 201706, end: 20170704
  2. ZEJULA [Suspect]
     Active Substance: NIRAPARIB
     Indication: MALIGNANT PERITONEAL NEOPLASM

REACTIONS (16)
  - White blood cell count decreased [Not Recovered/Not Resolved]
  - Dyspepsia [Unknown]
  - Balance disorder [Unknown]
  - Loss of personal independence in daily activities [Unknown]
  - Headache [Unknown]
  - Nausea [Unknown]
  - Blood count abnormal [Unknown]
  - Fatigue [Unknown]
  - Oropharyngeal pain [Unknown]
  - Dizziness [Unknown]
  - Platelet count decreased [Recovered/Resolved]
  - Anxiety [Unknown]
  - Back pain [Unknown]
  - Abdominal pain upper [Unknown]
  - Ulcer [Unknown]
  - Weight decreased [Unknown]

NARRATIVE: CASE EVENT DATE: 201706
